FAERS Safety Report 8070060-8 (Version None)
Quarter: 2012Q1

REPORT INFORMATION
  Report Type: 
  Country: None (occurrence: None)
  Receive Date: 20120125
  Receipt Date: 20120117
  Transmission Date: 20120608
  Serious: Yes (Life-Threatening, Other)
  Sender: FDA-Public Use
  Company Number: US-PFIZER INC-2012013675

PATIENT
  Sex: Female
  Weight: 81.633 kg

DRUGS (6)
  1. COLCRYS [Concomitant]
     Indication: GOUT
     Dosage: 0.6 MG, 2X/DAY
  2. PREMPRO [Suspect]
     Indication: MENOPAUSE
     Dosage: UNK
     Route: 048
     Dates: start: 19930101
  3. PREMPRO [Suspect]
     Indication: HOT FLUSH
  4. COLCRYS [Concomitant]
     Indication: ARTHRITIS
  5. ULTRAM [Concomitant]
     Indication: ARTHRITIS
     Dosage: 50 MG, 3X/DAY
  6. IMITREX [Concomitant]
     Indication: MIGRAINE
     Dosage: UNK

REACTIONS (9)
  - DISTURBANCE IN ATTENTION [None]
  - IRRITABILITY [None]
  - MEMORY IMPAIRMENT [None]
  - HEADACHE [None]
  - SUICIDE ATTEMPT [None]
  - MIGRAINE [None]
  - DEPRESSION [None]
  - GOUT [None]
  - ACTIVITIES OF DAILY LIVING IMPAIRED [None]
